FAERS Safety Report 5350880-0 (Version None)
Quarter: 2007Q2

REPORT INFORMATION
  Report Type: 
  Country: None (occurrence: None)
  Receive Date: 20070608
  Receipt Date: 20070605
  Transmission Date: 20071010
  Serious: Yes (Hospitalization)
  Sender: FDA-Public Use
  Company Number: B0474014A

PATIENT
  Age: 80 Year
  Sex: Male

DRUGS (6)
  1. AUGMENTIN '125' [Suspect]
     Indication: PNEUMOCOCCAL INFECTION
     Dosage: 2G THREE TIMES PER DAY
     Route: 042
     Dates: start: 20061220, end: 20061222
  2. LOVENOX [Suspect]
     Indication: PROPHYLAXIS
     Dosage: .4ML PER DAY
     Route: 058
     Dates: start: 20061220, end: 20061220
  3. TEGELINE [Suspect]
     Dosage: 32G PER DAY
     Route: 042
     Dates: start: 20061219, end: 20061223
  4. KARDEGIC [Concomitant]
     Indication: ACUTE MYOCARDIAL INFARCTION
     Route: 048
  5. SOPROL [Concomitant]
     Route: 048
  6. ZOLPIDEM [Concomitant]
     Indication: SLEEP DISORDER
     Route: 048

REACTIONS (1)
  - RENAL FAILURE ACUTE [None]
